FAERS Safety Report 7190095-7 (Version None)
Quarter: 2010Q4

REPORT INFORMATION
  Report Type: 
  Country: None (occurrence: None)
  Receive Date: 20101223
  Receipt Date: 20101220
  Transmission Date: 20110411
  Serious: No
  Sender: FDA-Public Use
  Company Number: US-PFIZER INC-2010169145

PATIENT
  Sex: Female
  Weight: 64.399 kg

DRUGS (2)
  1. VENLAFAXINE HCL [Suspect]
     Indication: DEPRESSION
     Dosage: 75 MG, 2X/DAY
     Dates: start: 20101116
  2. METFORMIN [Concomitant]
     Indication: TYPE 2 DIABETES MELLITUS
     Dosage: 1000 MG, 2X/DAY
     Route: 048

REACTIONS (4)
  - HEADACHE [None]
  - INSOMNIA [None]
  - NERVOUSNESS [None]
  - THIRST [None]
